FAERS Safety Report 10414831 (Version 2)
Quarter: 2014Q4

REPORT INFORMATION
  Report Type: Spontaneous
  Country: US (occurrence: None)
  Receive Date: 20140604
  Receipt Date: 20141205
  Transmission Date: 20150528
  Serious: No
  Sender: FDA-Public Use
  Company Number: 163-POMAL-14034832

PATIENT
  Age: 80 Year
  Sex: Female
  Weight: 64.41 kg

DRUGS (11)
  1. ASPIRIN (ACETYLASLICYLIC ACID) [Concomitant]
  2. CELEBREX [Concomitant]
     Active Substance: CELECOXIB
  3. PROCHLORPERAZINE MALEATE. [Concomitant]
     Active Substance: PROCHLORPERAZINE MALEATE
  4. POTASSIUM [Concomitant]
     Active Substance: POTASSIUM
  5. MAGNESIUM [Concomitant]
     Active Substance: MAGNESIUM
  6. VITAMIN D3 [Concomitant]
     Active Substance: CHOLECALCIFEROL
  7. IRON [Concomitant]
     Active Substance: IRON
  8. POMALYST [Suspect]
     Active Substance: POMALIDOMIDE
     Indication: PLASMA CELL MYELOMA
     Dosage: 4 MG, 21 IN 21 D, PO
     Route: 048
     Dates: start: 20140127
  9. TRIAMTERENE/HCTZ (DYAZIDE) [Concomitant]
  10. ATENOLOL. [Concomitant]
     Active Substance: ATENOLOL
  11. DEXAMETHASONE. [Concomitant]
     Active Substance: DEXAMETHASONE

REACTIONS (6)
  - Wheezing [None]
  - Neuropathy peripheral [None]
  - Weight increased [None]
  - Blood creatinine abnormal [None]
  - Fatigue [None]
  - Body height decreased [None]

NARRATIVE: CASE EVENT DATE: 2014
